FAERS Safety Report 26154047 (Version 1)
Quarter: 2025Q4

REPORT INFORMATION
  Report Type: Spontaneous
  Country: US (occurrence: US)
  Receive Date: 20251215
  Receipt Date: 20251215
  Transmission Date: 20260118
  Serious: No
  Sender: SANDOZ
  Company Number: US-SANDOZ-SDZ2025US093707

PATIENT
  Sex: Female

DRUGS (1)
  1. RIVASTIGMINE [Suspect]
     Active Substance: RIVASTIGMINE
     Indication: Dementia
     Dosage: STRENGTH: 4.6MG /24H, BID
     Route: 065

REACTIONS (3)
  - Alcohol interaction [Unknown]
  - Feeling hot [Unknown]
  - Nausea [Unknown]
